FAERS Safety Report 24864712 (Version 1)
Quarter: 2025Q1

REPORT INFORMATION
  Report Type: Spontaneous
  Country: US (occurrence: US)
  Receive Date: 20250121
  Receipt Date: 20250121
  Transmission Date: 20250409
  Serious: Yes (Other)
  Sender: STRIDES
  Company Number: US-STRIDES ARCOLAB LIMITED-2023SP018783

PATIENT
  Age: 13 Year
  Sex: Female

DRUGS (6)
  1. METHOTREXATE [Suspect]
     Active Substance: METHOTREXATE
     Indication: Juvenile idiopathic arthritis
     Route: 058
  2. TOCILIZUMAB [Suspect]
     Active Substance: TOCILIZUMAB
     Indication: Juvenile idiopathic arthritis
     Route: 065
  3. TOFACITINIB [Suspect]
     Active Substance: TOFACITINIB
     Indication: Juvenile idiopathic arthritis
     Route: 065
  4. ADALIMUMAB [Concomitant]
     Active Substance: ADALIMUMAB
     Indication: Juvenile idiopathic arthritis
     Route: 065
  5. ETANERCEPT [Concomitant]
     Active Substance: ETANERCEPT
     Indication: Juvenile idiopathic arthritis
     Route: 065
  6. ABATACEPT [Concomitant]
     Active Substance: ABATACEPT
     Indication: Juvenile idiopathic arthritis
     Route: 065

REACTIONS (1)
  - Drug ineffective [Unknown]
